FAERS Safety Report 23576045 (Version 3)
Quarter: 2024Q4

REPORT INFORMATION
  Report Type: Spontaneous
  Country: US (occurrence: US)
  Receive Date: 20240228
  Receipt Date: 20241112
  Transmission Date: 20250115
  Serious: Yes (Other)
  Sender: PFIZER
  Company Number: US-PFIZER INC-PV202400027094

PATIENT
  Age: 79 Year
  Sex: Male
  Weight: 71.202 kg

DRUGS (3)
  1. INLYTA [Suspect]
     Active Substance: AXITINIB
     Indication: Renal cancer
     Dosage: 1 MG
  2. INLYTA [Suspect]
     Active Substance: AXITINIB
     Dosage: 2 MG, 2X/DAY
     Dates: start: 20240315
  3. INLYTA [Suspect]
     Active Substance: AXITINIB
     Dosage: TAKE ONE TABLET (5 MG) BY MOUTH TWO TIMES DAILY
     Route: 048

REACTIONS (2)
  - Trigger finger [Recovered/Resolved]
  - Renal failure [Recovered/Resolved]

NARRATIVE: CASE EVENT DATE: 20200801
